FAERS Safety Report 21614300 (Version 1)
Quarter: 2022Q4

REPORT INFORMATION
  Report Type: Spontaneous
  Country: US (occurrence: None)
  Receive Date: 20221117
  Receipt Date: 20221117
  Transmission Date: 20230113
  Serious: Yes (Other)
  Sender: FDA-Public Use
  Company Number: None

PATIENT
  Age: 65 Year
  Sex: Female
  Weight: 51.3 kg

DRUGS (18)
  1. AZITHROMYCIN ANHYDROUS [Suspect]
     Active Substance: AZITHROMYCIN ANHYDROUS
     Indication: Upper respiratory tract infection
     Dosage: OTHER QUANTITY : 6 TABLET(S);?OTHER FREQUENCY : 2 ON D1, THEN 1/D;?
     Route: 048
     Dates: start: 20221117, end: 20221117
  2. ALBUTEROL SULFATE [Suspect]
     Active Substance: ALBUTEROL SULFATE
     Indication: Dyspnoea
     Dosage: OTHER QUANTITY : 2 PUFF(S);?FREQUENCY : AS NEEDED;?
     Route: 055
  3. PREGABALIN [Concomitant]
     Active Substance: PREGABALIN
  4. FAMOTIDINE [Concomitant]
     Active Substance: FAMOTIDINE
  5. DICYCLOMINE [Concomitant]
     Active Substance: DICYCLOMINE HYDROCHLORIDE
  6. FLUTICASONE [Concomitant]
     Active Substance: FLUTICASONE
  7. FOLIC ACID [Concomitant]
     Active Substance: FOLIC ACID
  8. TRAZODONE [Concomitant]
     Active Substance: TRAZODONE HYDROCHLORIDE
  9. ESCITALOPRAM [Concomitant]
     Active Substance: ESCITALOPRAM OXALATE
  10. HIZENTRA [Concomitant]
     Active Substance: HUMAN IMMUNOGLOBULIN G
  11. ondansetron (as needed) [Concomitant]
  12. VITAMIN C [Concomitant]
     Active Substance: ASCORBIC ACID
  13. VITAMIN B COMPLEX [Concomitant]
     Active Substance: CYANOCOBALAMIN\DEXPANTHENOL\NIACINAMIDE\PYRIDOXINE HYDROCHLORIDE\RIBOFLAVIN 5^-PHOSPHATE SODIUM\THIA
  14. D3 W/CALCIUM [Concomitant]
  15. FISH OIL [Concomitant]
     Active Substance: FISH OIL
  16. BIOTIN [Concomitant]
     Active Substance: BIOTIN
  17. MIRALAX [Concomitant]
     Active Substance: POLYETHYLENE GLYCOL 3350
  18. MELATONIN [Concomitant]
     Active Substance: MELATONIN

REACTIONS (5)
  - Diarrhoea [None]
  - Confusional state [None]
  - Hyperhidrosis [None]
  - Trismus [None]
  - Throat tightness [None]

NARRATIVE: CASE EVENT DATE: 20221117
